FAERS Safety Report 7521983-7 (Version None)
Quarter: 2011Q2

REPORT INFORMATION
  Report Type: 
  Country: None (occurrence: None)
  Receive Date: 20110603
  Receipt Date: 20110523
  Transmission Date: 20111010
  Serious: Yes (Other)
  Sender: FDA-Public Use
  Company Number: DK-NOVOPROD-328778

PATIENT
  Sex: Female

DRUGS (8)
  1. SIMVASTATIN [Concomitant]
     Indication: HYPERCHOLESTEROLAEMIA
  2. AMLODIPIN 1A FARMA [Concomitant]
     Indication: HYPERTENSION
  3. CLOPIDOGREL [Concomitant]
     Indication: PROPHYLAXIS
  4. METFORMIN HCL [Concomitant]
     Indication: TYPE 1 DIABETES MELLITUS
  5. VICTOZA [Suspect]
     Indication: TYPE 1 DIABETES MELLITUS
     Dosage: UNK
     Route: 058
     Dates: start: 20110505
  6. CORODIL                            /00042901/ [Concomitant]
     Indication: HYPERTENSION
  7. METOPROLOL SUCCINATE [Concomitant]
     Indication: HYPERTENSION
  8. CLOPIDOGREL [Concomitant]
     Indication: CEREBROVASCULAR ACCIDENT

REACTIONS (2)
  - PARESIS CRANIAL NERVE [None]
  - CEREBRAL INFARCTION [None]
